FAERS Safety Report 13589560 (Version 1)
Quarter: 2017Q2

REPORT INFORMATION
  Report Type: Report from Study
  Country: US (occurrence: US)
  Receive Date: 20170530
  Receipt Date: 20170530
  Transmission Date: 20170830
  Serious: Yes (Death, Hospitalization)
  Sender: FDA-Public Use
  Company Number: US-ASTRAZENECA-2017SE55060

PATIENT
  Age: 895 Month
  Sex: Female
  Weight: 90.7 kg

DRUGS (4)
  1. INSULIN [Concomitant]
     Active Substance: INSULIN NOS
  2. ZOLOFT [Concomitant]
     Active Substance: SERTRALINE HYDROCHLORIDE
  3. OXYGEN. [Concomitant]
     Active Substance: OXYGEN
  4. IRESSA [Suspect]
     Active Substance: GEFITINIB
     Indication: LUNG CARCINOMA CELL TYPE UNSPECIFIED STAGE IV
     Route: 048
     Dates: start: 20170411, end: 201705

REACTIONS (21)
  - Asthenia [Unknown]
  - Somnolence [Unknown]
  - Decreased appetite [Unknown]
  - Depression [Unknown]
  - Nausea [Unknown]
  - Pleural effusion [Unknown]
  - Agitation [Unknown]
  - Fluid intake reduced [Unknown]
  - Weight decreased [Unknown]
  - Dehydration [Unknown]
  - Muscular weakness [Unknown]
  - Malaise [Unknown]
  - Vomiting [Unknown]
  - Fall [Unknown]
  - Death [Fatal]
  - Dyspnoea [Unknown]
  - Eating disorder [Unknown]
  - Loss of personal independence in daily activities [Unknown]
  - General physical health deterioration [Unknown]
  - Vomiting [Unknown]
  - Gait disturbance [Unknown]

NARRATIVE: CASE EVENT DATE: 201703
